FAERS Safety Report 6366121-1 (Version None)
Quarter: 2009Q3

REPORT INFORMATION
  Report Type: 
  Country: None (occurrence: None)
  Receive Date: 20090920
  Receipt Date: 20090828
  Transmission Date: 20100115
  Serious: No
  Sender: FDA-Public Use
  Company Number: US-BAUSCH-2009BL004404

PATIENT
  Age: 71 Year
  Sex: Female

DRUGS (2)
  1. ALAWAY [Suspect]
     Indication: EYE DISCHARGE
     Route: 047
     Dates: start: 20090827
  2. RESTASIS [Concomitant]

REACTIONS (1)
  - HEADACHE [None]
